FAERS Safety Report 9617933 (Version 4)
Quarter: 2014Q1

REPORT INFORMATION
  Report Type: Spontaneous
  Country: GB (occurrence: GB)
  Receive Date: 20131011
  Receipt Date: 20140327
  Transmission Date: 20141002
  Serious: Yes (Life-Threatening, Other)
  Sender: FDA-Public Use
  Company Number: GB-009507513-0711GBR00081

PATIENT
  Age: 19 Year
  Sex: Female

DRUGS (14)
  1. CASPOFUNGIN ACETATE [Suspect]
     Dosage: 70 MG, QD
     Route: 042
  2. ACYCLOVIR [Suspect]
  3. CHLORPHENIRAMINE MALEATE [Suspect]
     Dosage: 10 MG, QID
     Route: 042
  4. CYCLOSPORINE [Suspect]
  5. ETOPOPHOS [Suspect]
     Dosage: 4650 MG, QD
     Route: 042
     Dates: start: 20070915, end: 20070915
  6. KETALAR [Suspect]
     Indication: PAIN
     Dosage: 6 ML, QH
     Route: 042
     Dates: start: 20070921, end: 20070928
  7. MORPHINE [Suspect]
     Route: 042
  8. NORETHINDRONE [Suspect]
     Dosage: 5 MG, TID
     Route: 048
  9. OMEPRAZOLE [Suspect]
     Route: 048
  10. ONDANSETRON [Suspect]
     Dosage: 8 MG, TID
     Route: 042
  11. ACETAMINOPHEN [Suspect]
     Route: 042
  12. TAZOCIN [Suspect]
     Dosage: 4.5 MG, TID
     Route: 042
  13. VORICONAZOLE [Suspect]
     Dosage: 200 MG, BID
     Route: 048
  14. ALLOPURINOL [Suspect]
     Dosage: 300 MG, QD
     Route: 048

REACTIONS (4)
  - Dilatation intrahepatic duct acquired [Unknown]
  - Hepatotoxicity [Unknown]
  - Venoocclusive liver disease [Unknown]
  - Liver function test abnormal [Not Recovered/Not Resolved]
